FAERS Safety Report 4494433-5 (Version None)
Quarter: 2004Q4

REPORT INFORMATION
  Report Type: 
  Country: None (occurrence: None)
  Receive Date: 20041102
  Receipt Date: 20041014
  Transmission Date: 20050328
  Serious: Yes (Hospitalization, Other)
  Sender: FDA-Public Use
  Company Number: JP_040904475

PATIENT
  Age: 16 Year
  Sex: Female
  Weight: 40 kg

DRUGS (4)
  1. ZYPREXA [Suspect]
     Indication: SCHIZOPHRENIA
     Dates: start: 20040907, end: 20040907
  2. DEPAS (ETIZOLAM) [Concomitant]
  3. NITRAZEPAM [Concomitant]
  4. HIRNAMIN (LEVOMEPROMAZINE) [Concomitant]

REACTIONS (13)
  - COMA [None]
  - DECUBITUS ULCER [None]
  - DEPRESSED LEVEL OF CONSCIOUSNESS [None]
  - HYPERHIDROSIS [None]
  - HYPOXIA [None]
  - MULTIPLE DRUG OVERDOSE INTENTIONAL [None]
  - MUSCLE RIGIDITY [None]
  - NEUROLEPTIC MALIGNANT SYNDROME [None]
  - SALIVARY HYPERSECRETION [None]
  - SEDATION [None]
  - STRESS SYMPTOMS [None]
  - SUICIDE ATTEMPT [None]
  - TACHYPNOEA [None]
